FAERS Safety Report 23739962 (Version 1)
Quarter: 2024Q2

REPORT INFORMATION
  Report Type: Spontaneous
  Country: US (occurrence: US)
  Receive Date: 20240414
  Receipt Date: 20240414
  Transmission Date: 20240716
  Serious: Yes (Hospitalization, Other)
  Sender: FDA-Public Use
  Company Number: US-GLENMARK PHARMACEUTICALS-2024GMK090010

PATIENT

DRUGS (1)
  1. VERAPAMIL [Suspect]
     Active Substance: VERAPAMIL HYDROCHLORIDE
     Indication: Product used for unknown indication
     Dosage: 240 MILLIGRAM, OD, ONCE DAILY
     Route: 065

REACTIONS (6)
  - Toxicity to various agents [Unknown]
  - Distributive shock [Recovered/Resolved]
  - Lethargy [Unknown]
  - Hypotension [Unknown]
  - Bradycardia [Unknown]
  - Bifascicular block [Recovered/Resolved]
